FAERS Safety Report 25315771 (Version 8)
Quarter: 2025Q4

REPORT INFORMATION
  Report Type: Report from Study
  Country: JP (occurrence: JP)
  Receive Date: 20250515
  Receipt Date: 20251021
  Transmission Date: 20260118
  Serious: Yes (Hospitalization, Other)
  Sender: ASTELLAS
  Company Number: JP-ASTELLAS-2025-AER-005808

PATIENT
  Age: 41 Year
  Sex: Female
  Weight: 49 kg

DRUGS (27)
  1. VYLOY [Suspect]
     Active Substance: ZOLBETUXIMAB-CLZB
     Indication: Gastric cancer
     Dosage: 1200MG
     Route: 042
     Dates: start: 20250128, end: 20250128
  2. VYLOY [Suspect]
     Active Substance: ZOLBETUXIMAB-CLZB
     Route: 042
     Dates: start: 20250325
  3. MAGNESIUM OXIDE [Concomitant]
     Active Substance: MAGNESIUM OXIDE
     Indication: Constipation
     Route: 048
     Dates: start: 20241214
  4. Heparinoid Oil-Based Cream [Concomitant]
     Indication: Product used for unknown indication
     Route: 065
  5. DIFLUPREDNATE Ointment [Concomitant]
     Indication: Product used for unknown indication
     Route: 065
  6. LOPERAMIDE [Concomitant]
     Active Substance: LOPERAMIDE
     Indication: Product used for unknown indication
     Route: 065
  7. SENNOSIDES [Concomitant]
     Active Substance: SENNOSIDES
     Indication: Product used for unknown indication
     Route: 065
  8. LOXOPROFEN [Concomitant]
     Active Substance: LOXOPROFEN
     Indication: Product used for unknown indication
     Route: 065
  9. Takecab OD tablet [Concomitant]
     Indication: Gastrooesophageal reflux disease
     Route: 048
     Dates: start: 20241214
  10. CAPECITABINE [Concomitant]
     Active Substance: CAPECITABINE
     Indication: Gastric cancer
     Route: 048
     Dates: start: 20250128
  11. CAPECITABINE [Concomitant]
     Active Substance: CAPECITABINE
     Route: 048
     Dates: start: 20250325
  12. CAPECITABINE [Concomitant]
     Active Substance: CAPECITABINE
     Route: 048
  13. Elplat i.v.infusion solution [Concomitant]
     Indication: Gastric cancer
     Route: 042
     Dates: start: 20250325
  14. Elplat i.v.infusion solution [Concomitant]
     Route: 042
     Dates: start: 20250128
  15. Elplat i.v.infusion solution [Concomitant]
     Route: 042
  16. Palonosetron intravenous injection [Concomitant]
     Indication: Gastric cancer
     Route: 042
     Dates: start: 20250128
  17. Dexart intravenous injection [Concomitant]
     Indication: Gastric cancer
     Route: 042
     Dates: start: 20250128
  18. Arokaris I.V.infusion [Concomitant]
     Indication: Gastric cancer
     Route: 042
     Dates: start: 20250128
  19. POLARAMINE [Concomitant]
     Active Substance: DEXCHLORPHENIRAMINE MALEATE
     Indication: Abdominal pain
     Route: 042
     Dates: start: 20250128
  20. POLARAMINE [Concomitant]
     Active Substance: DEXCHLORPHENIRAMINE MALEATE
     Indication: Decreased appetite
  21. POLARAMINE [Concomitant]
     Active Substance: DEXCHLORPHENIRAMINE MALEATE
     Indication: Gastric cancer
  22. Decadron tablet [Concomitant]
     Indication: Gastric cancer
     Route: 048
     Dates: start: 20250129
  23. METOCLOPRAMIDE [Concomitant]
     Active Substance: METOCLOPRAMIDE
     Indication: Abdominal pain
     Route: 065
     Dates: start: 20250204
  24. METOCLOPRAMIDE [Concomitant]
     Active Substance: METOCLOPRAMIDE
     Indication: Decreased appetite
  25. OMEPRAZOLE [Concomitant]
     Active Substance: OMEPRAZOLE
     Indication: Gastritis
     Route: 065
     Dates: start: 20250205
  26. CEFAZOLIN [Concomitant]
     Active Substance: CEFAZOLIN
     Indication: Gastritis
     Route: 065
     Dates: start: 20250205
  27. Oxycodone oral solution 2.5mg [Concomitant]
     Indication: Product used for unknown indication
     Route: 065
     Dates: start: 20250205

REACTIONS (11)
  - Gastritis [Recovering/Resolving]
  - Abdominal pain [Recovering/Resolving]
  - Decreased appetite [Recovering/Resolving]
  - Nausea [Recovering/Resolving]
  - Vomiting [Unknown]
  - Protein-losing gastroenteropathy [Recovering/Resolving]
  - Hypoalbuminaemia [Recovering/Resolving]
  - Hypogammaglobulinaemia [Recovering/Resolving]
  - Nausea [Recovered/Resolved]
  - Nausea [Recovering/Resolving]
  - Full blood count decreased [Unknown]

NARRATIVE: CASE EVENT DATE: 20250128
